FAERS Safety Report 16021806 (Version 1)
Quarter: 2019Q1

REPORT INFORMATION
  Report Type: Spontaneous
  Country: US (occurrence: US)
  Receive Date: 20190301
  Receipt Date: 20190301
  Transmission Date: 20190418
  Serious: Yes (Hospitalization)
  Sender: FDA-Public Use
  Company Number: None

PATIENT
  Sex: Female

DRUGS (18)
  1. VITAMIN D [Concomitant]
     Active Substance: CHOLECALCIFEROL
  2. HYOSCYAMINE. [Concomitant]
     Active Substance: HYOSCYAMINE
  3. CLOBETASON [Concomitant]
  4. LEVOTHYROXIN [Concomitant]
     Active Substance: LEVOTHYROXINE
  5. VENLAFAXINE [Concomitant]
     Active Substance: VENLAFAXINE HYDROCHLORIDE
  6. ROPINIROLE. [Concomitant]
     Active Substance: ROPINIROLE
  7. LOSARTAN POT [Concomitant]
     Active Substance: LOSARTAN POTASSIUM
  8. INVOKANA [Concomitant]
     Active Substance: CANAGLIFLOZIN
  9. CELEBREX [Concomitant]
     Active Substance: CELECOXIB
  10. ONETOUCH REVOLUTION TOPICAL ANESTHETIC [Concomitant]
     Active Substance: BENZOCAINE
  11. BACLOFEN. [Concomitant]
     Active Substance: BACLOFEN
  12. GLIPIZIDE. [Concomitant]
     Active Substance: GLIPIZIDE
  13. SULINDAC. [Concomitant]
     Active Substance: SULINDAC
  14. COSENTYX [Suspect]
     Active Substance: SECUKINUMAB
     Indication: PSORIATIC ARTHROPATHY
     Dosage: ?          OTHER FREQUENCY:Q 4 WEEKS;?
     Route: 058
     Dates: start: 20180518
  15. AMLODIPINE [Concomitant]
     Active Substance: AMLODIPINE BESYLATE
  16. TRIAMCINOLON [Concomitant]
  17. VITAMIN D3 [Concomitant]
     Active Substance: CHOLECALCIFEROL
  18. CARVEDILOL. [Concomitant]
     Active Substance: CARVEDILOL

REACTIONS (1)
  - Knee operation [None]
